FAERS Safety Report 8762775 (Version 1)
Quarter: 2012Q4

REPORT INFORMATION
  Report Type: 
  Country: US (occurrence: US)
  Receive Date: 20120830
  Receipt Date: 20120830
  Transmission Date: 20130627
  Serious: No
  Sender: FDA-Public Use
  Company Number: US-PFIZER INC-2012211278

PATIENT
  Age: 76 Year
  Sex: Female
  Weight: 104 kg

DRUGS (17)
  1. NEURONTIN [Suspect]
     Indication: MUSCLE SPASMS
     Dosage: UNK
     Dates: end: 2010
  2. NEURONTIN [Suspect]
     Indication: PARAESTHESIA
  3. NEURONTIN [Suspect]
     Indication: HYPOAESTHESIA
  4. GABAPENTIN [Suspect]
     Indication: MUSCLE SPASMS
     Dosage: UNK, 2x/day
  5. GABAPENTIN [Suspect]
     Indication: PARAESTHESIA
  6. GABAPENTIN [Suspect]
     Indication: HYPOAESTHESIA
  7. LYRICA [Suspect]
     Indication: NEURALGIA
     Dosage: 75 mg, 2x/day
     Dates: start: 2010
  8. CELEBREX [Suspect]
     Indication: SPINAL OSTEOARTHRITIS
     Dosage: UNK
  9. CELEBREX [Suspect]
     Dosage: 200 mg, 2x/day
     Dates: start: 201206
  10. DAYPRO [Suspect]
     Indication: OSTEOARTHRITIS
     Dosage: UNK
  11. AMLODIPINE/BENAZEPRIL [Concomitant]
     Indication: HYPERTENSION
     Dosage: 10/2 mg, daily
  12. FUROSEMIDE [Concomitant]
     Indication: HYPERTENSION
     Dosage: 80 mg, daily
     Dates: start: 1990
  13. FUROSEMIDE [Concomitant]
     Indication: CARDIAC DISORDER
  14. NADOLOL [Concomitant]
     Indication: CARDIAC DISORDER
     Dosage: 80 mg, daily
  15. HYDROCODONE [Concomitant]
     Indication: PAIN
     Dosage: UNK, every 4 hours
  16. ALPRAZOLAM [Concomitant]
     Indication: ANXIETY
     Dosage: 0.25 mg, 2x/day
  17. PROZAC [Concomitant]
     Indication: DEPRESSION
     Dosage: 40 mg, daily

REACTIONS (4)
  - Drug administration error [Unknown]
  - Drug ineffective [Unknown]
  - Hypoaesthesia [Unknown]
  - Condition aggravated [Unknown]
